FAERS Safety Report 22004413 (Version 3)
Quarter: 2023Q1

REPORT INFORMATION
  Report Type: Other
  Country: US (occurrence: None)
  Receive Date: 20230217
  Receipt Date: 20230316
  Transmission Date: 20230418
  Serious: Yes (Other)
  Sender: FDA-Public Use
  Company Number: US-ROCHE-3285409

PATIENT
  Age: 58 Year
  Sex: Female
  Weight: 83.082 kg

DRUGS (16)
  1. AVASTIN [Suspect]
     Active Substance: BEVACIZUMAB
     Indication: Brain neoplasm malignant
     Dosage: INFUSE 600MG INTRAVENOUSLY EVERY 3 WEEK
     Route: 042
  2. TYLENOL [Concomitant]
     Active Substance: ACETAMINOPHEN
     Dosage: 325 MG 2 TABLET ORALLY ONCE
  3. BENADRYL [Concomitant]
     Active Substance: DIPHENHYDRAMINE HYDROCHLORIDE
     Dosage: 25 MG 1 CAPSULE ORALLY ONCE
  4. EPINEPHRINE [Concomitant]
     Active Substance: EPINEPHRINE
     Dosage: 0.3 MG INTRAMUSCULARLY ONCE AS NEEDED
  5. DIPHENHYDRAMINE [Concomitant]
     Active Substance: DIPHENHYDRAMINE
     Dosage: 60 MG INTRAVENOUSLY
  6. FAMOTIDINE [Concomitant]
     Active Substance: FAMOTIDINE
     Dosage: 20 MG INTRAVENOUSLY AS NEEDED
  7. HYDROCORTISONE [Concomitant]
     Active Substance: HYDROCORTISONE
     Dosage: 100 MG INTRAVENOUSLY AS NEEDED
  8. DEXAMETHASONE [Concomitant]
     Active Substance: DEXAMETHASONE
     Dosage: ORAL 4 MG TABLET
  9. FISH OIL [Concomitant]
     Active Substance: FISH OIL
  10. VITAMIN E [Concomitant]
     Active Substance: .ALPHA.-TOCOPHEROL
     Dosage: ORAL 1000 UNITE CAPSULE
  11. ACETAMINOPHEN [Concomitant]
     Active Substance: ACETAMINOPHEN
     Dosage: ORAL 650 MG
  12. ONDANSETRON [Concomitant]
     Active Substance: ONDANSETRON
     Route: 048
  13. PROCHLORPERAZINE [Concomitant]
     Active Substance: PROCHLORPERAZINE
  14. SULFAMETHOXAZOLE\TRIMETHOPRIM [Concomitant]
     Active Substance: SULFAMETHOXAZOLE\TRIMETHOPRIM
  15. ESTRADIOL [Concomitant]
     Active Substance: ESTRADIOL
  16. PROGESTERONE [Concomitant]
     Active Substance: PROGESTERONE

REACTIONS (21)
  - Diverticulitis [Unknown]
  - Blood glucose increased [Unknown]
  - Blood calcium increased [Unknown]
  - Pruritus [Unknown]
  - Thrombocytopenia [Unknown]
  - Gastrooesophageal reflux disease [Unknown]
  - Cervical radiculopathy [Unknown]
  - Vulvovaginal dryness [Unknown]
  - Hot flush [Unknown]
  - Headache [Recovered/Resolved]
  - Hypertension [Unknown]
  - Proteinuria [Unknown]
  - Gastrointestinal perforation [Unknown]
  - Dizziness [Recovered/Resolved]
  - Impaired healing [Unknown]
  - Radiation necrosis [Unknown]
  - Glioblastoma multiforme [Unknown]
  - Somnolence [Unknown]
  - Lymphocyte count decreased [Unknown]
  - Eosinophil count increased [Unknown]
  - Blood glucose increased [Unknown]
